FAERS Safety Report 15458905 (Version 1)
Quarter: 2018Q4

REPORT INFORMATION
  Report Type: Spontaneous
  Country: US (occurrence: US)
  Receive Date: 20181001
  Receipt Date: 20181001
  Transmission Date: 20190204
  Serious: Yes (Other)
  Sender: FDA-Public Use
  Company Number: None

PATIENT
  Age: 57 Year
  Sex: Female
  Weight: 61.69 kg

DRUGS (10)
  1. METFORMIN [Concomitant]
     Active Substance: METFORMIN HYDROCHLORIDE
  2. LISINAPRIL [Concomitant]
  3. VENTOLIN [Concomitant]
     Active Substance: ALBUTEROL SULFATE
  4. ATENOLOL. [Concomitant]
     Active Substance: ATENOLOL
  5. GLIPIZIDE. [Concomitant]
     Active Substance: GLIPIZIDE
  6. OMEPRAZOLE. [Concomitant]
     Active Substance: OMEPRAZOLE
  7. HCTZ [Concomitant]
     Active Substance: HYDROCHLOROTHIAZIDE
  8. INDOMETHACIN. [Suspect]
     Active Substance: INDOMETHACIN
     Indication: GOUT
     Dosage: ?          OTHER STRENGTH:50 MG CAP CAM;QUANTITY:1 ;?
     Dates: start: 20180428, end: 20180505
  9. NEBULIZER [Concomitant]
     Active Substance: DEVICE
  10. IBUPROFEN. [Concomitant]
     Active Substance: IBUPROFEN

REACTIONS (4)
  - Hypertension [None]
  - Headache [None]
  - Blood glucose increased [None]
  - Heart rate increased [None]

NARRATIVE: CASE EVENT DATE: 20180428
